FAERS Safety Report 5824449-5 (Version None)
Quarter: 2008Q3

REPORT INFORMATION
  Report Type: 
  Country: None (occurrence: None)
  Receive Date: 20080728
  Receipt Date: 20080716
  Transmission Date: 20090109
  Serious: Yes (Hospitalization)
  Sender: FDA-Public Use
  Company Number: B0529490A

PATIENT
  Age: 65 Year
  Sex: Female

DRUGS (14)
  1. PAROXETINE HCL [Suspect]
  2. METHYLENE BLUE [Suspect]
     Indication: PARATHYROIDECTOMY
     Route: 042
  3. INSULIN HUMAN [Concomitant]
  4. METFORMIN [Concomitant]
  5. RAMIPRIL [Concomitant]
  6. ATENOLOL [Concomitant]
  7. SIMVASTATIN [Concomitant]
  8. CARBIMAZOLE [Concomitant]
  9. MIDAZOLAM HCL [Concomitant]
     Route: 042
  10. ASPIRIN [Concomitant]
  11. FENTANYL-100 [Concomitant]
     Route: 042
  12. PROPOFOL [Concomitant]
     Route: 042
  13. ROCURONIUM BROMIDE [Concomitant]
     Route: 042
  14. ISOFLURANE [Concomitant]

REACTIONS (3)
  - AGITATION [None]
  - CONFUSIONAL STATE [None]
  - DRUG INTERACTION [None]
